FAERS Safety Report 17469946 (Version 2)
Quarter: 2020Q2

REPORT INFORMATION
  Report Type: Spontaneous
  Country: US (occurrence: US)
  Receive Date: 20200227
  Receipt Date: 20200605
  Transmission Date: 20200713
  Serious: No
  Sender: FDA-Public Use
  Company Number: US-009507513-2002USA007857

PATIENT
  Age: 19 Year
  Weight: 57.5 kg

DRUGS (1)
  1. ZERBAXA [Suspect]
     Active Substance: CEFTOLOZANE SULFATE\TAZOBACTAM SODIUM
     Indication: CYSTIC FIBROSIS
     Dosage: 34.8 MG/KG

REACTIONS (1)
  - Product use in unapproved indication [Unknown]
